FAERS Safety Report 4421777-5 (Version None)
Quarter: 2004Q3

REPORT INFORMATION
  Report Type: 
  Country: None (occurrence: None)
  Receive Date: 20040806
  Receipt Date: 20040721
  Transmission Date: 20050211
  Serious: Yes (Other)
  Sender: FDA-Public Use
  Company Number: USA040361311

PATIENT
  Age: 64 Year
  Sex: Female
  Weight: 59 kg

DRUGS (6)
  1. EVISTA [Suspect]
     Indication: OSTEOPOROSIS
     Dosage: 60 MG DAY
     Dates: start: 20040123
  2. FORTEO [Suspect]
     Indication: OSTEOPOROSIS
     Dosage: 20 UG DAY
     Dates: start: 20040502, end: 20040509
  3. FOSAMAX [Concomitant]
  4. NORPACE [Concomitant]
  5. ATENOLOL [Concomitant]
  6. CALCIUM [Concomitant]

REACTIONS (8)
  - BACK PAIN [None]
  - CHEST PAIN [None]
  - KYPHOSIS [None]
  - PAIN [None]
  - PALPITATIONS [None]
  - PHARMACEUTICAL PRODUCT COMPLAINT [None]
  - SPINAL COMPRESSION FRACTURE [None]
  - TENDERNESS [None]
